FAERS Safety Report 23709204 (Version 1)
Quarter: 2024Q2

REPORT INFORMATION
  Report Type: Spontaneous
  Country: US (occurrence: None)
  Receive Date: 20240404
  Receipt Date: 20240404
  Transmission Date: 20240716
  Serious: No
  Sender: FDA-Public Use
  Company Number: None

PATIENT

DRUGS (2)
  1. SOLU-CORTEF [Suspect]
     Active Substance: HYDROCORTISONE SODIUM SUCCINATE
     Dosage: OTHER FREQUENCY : VIAL?OTHER ROUTE : IM OR IV?DOSAGE FORM INJECTABLE
     Route: 050
  2. SOLU-CORTEF [Suspect]
     Active Substance: HYDROCORTISONE SODIUM SUCCINATE
     Dosage: OTHER QUANTITY : 2ML ACT-O-VIAL;?OTHER FREQUENCY : SINGLE-DOSE VIAL;?OTHER ROUTE : IM OR IV;?
     Route: 050

REACTIONS (5)
  - Product packaging confusion [None]
  - Product dispensing error [None]
  - Drug monitoring procedure incorrectly performed [None]
  - Wrong product administered [None]
  - Product reconstitution quality issue [None]
